FAERS Safety Report 20172686 (Version 1)
Quarter: 2021Q4

REPORT INFORMATION
  Report Type: Spontaneous
  Country: IT (occurrence: IT)
  Receive Date: 20211211
  Receipt Date: 20211211
  Transmission Date: 20220304
  Serious: Yes (Death)
  Sender: FDA-Public Use
  Company Number: None

PATIENT
  Age: 61 Year
  Sex: Female
  Weight: 59 kg

DRUGS (1)
  1. TEMODAL [Suspect]
     Active Substance: TEMOZOLOMIDE
     Indication: Glioblastoma
     Dosage: 120 MILLIGRAM, QD, 2.5 MG/ML, TABLET, POWDER FOR SOLUTION FOR INFUSION
     Route: 048
     Dates: start: 20210712, end: 20210817

REACTIONS (1)
  - Aplasia [Fatal]

NARRATIVE: CASE EVENT DATE: 20210817
